FAERS Safety Report 14204723 (Version 1)
Quarter: 2017Q4

REPORT INFORMATION
  Report Type: Spontaneous
  Country: US (occurrence: None)
  Receive Date: 20171118
  Receipt Date: 20171118
  Transmission Date: 20180321
  Serious: Yes (Disabling)
  Sender: FDA-Public Use
  Company Number: None

PATIENT
  Sex: Male
  Weight: 63.5 kg

DRUGS (10)
  1. CENTRUM SILVER VITAMIN [Concomitant]
  2. VITAMIN D3 [Concomitant]
     Active Substance: CHOLECALCIFEROL
  3. SERTRALINE [Concomitant]
     Active Substance: SERTRALINE HYDROCHLORIDE
  4. FOLIC ACID. [Concomitant]
     Active Substance: FOLIC ACID
  5. CALCIUM [Concomitant]
     Active Substance: CALCIUM
  6. LEFLUOMIDE [Concomitant]
  7. PROLIA [Suspect]
     Active Substance: DENOSUMAB
     Indication: BONE LOSS
  8. OMEPRAZOLE. [Concomitant]
     Active Substance: OMEPRAZOLE
  9. LOSARTIN [Concomitant]
     Active Substance: LOSARTAN
  10. FINASTERIDE. [Concomitant]
     Active Substance: FINASTERIDE

REACTIONS (5)
  - Sleep disorder [None]
  - Pain [None]
  - Groin pain [None]
  - Musculoskeletal pain [None]
  - Gait inability [None]

NARRATIVE: CASE EVENT DATE: 20170824
